FAERS Safety Report 9344716 (Version 1)
Quarter: 2013Q2

REPORT INFORMATION
  Report Type: Spontaneous
  Country: GB (occurrence: GB)
  Receive Date: 20130612
  Receipt Date: 20130612
  Transmission Date: 20140414
  Serious: Yes (Other)
  Sender: FDA-Public Use
  Company Number: GB-PFIZER INC-2013173782

PATIENT
  Age: 75 Year
  Sex: Female
  Weight: 97 kg

DRUGS (4)
  1. ATORVASTATIN CALCIUM [Suspect]
     Indication: BLOOD CHOLESTEROL INCREASED
     Dosage: 40 MG, ONCE DAILY
     Route: 048
     Dates: start: 20130201, end: 20130228
  2. CANDESARTAN [Concomitant]
     Dosage: 16 MG, UNK
  3. DOXAZOSIN [Concomitant]
     Dosage: 4 MG, UNK
  4. OMEPRAZOLE [Concomitant]
     Dosage: 20 MG, UNK

REACTIONS (2)
  - Amnesia [Recovered/Resolved with Sequelae]
  - Confusional state [Recovering/Resolving]
